FAERS Safety Report 15106312 (Version 2)
Quarter: 2018Q3

REPORT INFORMATION
  Report Type: Spontaneous
  Country: US (occurrence: US)
  Receive Date: 20180704
  Receipt Date: 20180808
  Transmission Date: 20181010
  Serious: Yes (Other)
  Sender: FDA-Public Use
  Company Number: US-B.I. PHARMACEUTICALS,INC./RIDGEFIELD-2018-BI-033525

PATIENT
  Age: 48 Year
  Sex: Female

DRUGS (1)
  1. COMBIVENT [Suspect]
     Active Substance: ALBUTEROL SULFATE\IPRATROPIUM BROMIDE
     Indication: CHRONIC OBSTRUCTIVE PULMONARY DISEASE
     Dosage: STRENGTH: 18 MCG / 103 MCG; ADMINISTRATION CORRECT? YES; ACTION TAKEN: DOSE NOT CHANGED
     Route: 055
     Dates: start: 2016

REACTIONS (5)
  - Dyspnoea [Not Recovered/Not Resolved]
  - Product quality issue [Unknown]
  - Pulmonary mass [Not Recovered/Not Resolved]
  - Colon cancer [Recovered/Resolved]
  - Pancreatic neoplasm [Not Recovered/Not Resolved]

NARRATIVE: CASE EVENT DATE: 2017
